FAERS Safety Report 18851574 (Version 1)
Quarter: 2021Q1

REPORT INFORMATION
  Report Type: Spontaneous
  Country: US (occurrence: US)
  Receive Date: 20210205
  Receipt Date: 20210205
  Transmission Date: 20210420
  Serious: Yes (Other)
  Sender: FDA-Public Use
  Company Number: US-SA-2021SA035740

PATIENT
  Age: 77 Year
  Sex: Female

DRUGS (1)
  1. DUPIXENT [Suspect]
     Active Substance: DUPILUMAB
     Dosage: 300 MG
     Route: 058
     Dates: start: 202004

REACTIONS (6)
  - Vision blurred [Unknown]
  - Visual impairment [Unknown]
  - Condition aggravated [Unknown]
  - Impaired driving ability [Unknown]
  - Glaucoma [Unknown]
  - Diplopia [Unknown]

NARRATIVE: CASE EVENT DATE: 20200801
